FAERS Safety Report 14688722 (Version 4)
Quarter: 2018Q2

REPORT INFORMATION
  Report Type: Report from Study
  Country: US (occurrence: US)
  Receive Date: 20180328
  Receipt Date: 20180630
  Transmission Date: 20180711
  Serious: No
  Sender: FDA-Public Use
  Company Number: PHEH2018US010337

PATIENT
  Sex: Female

DRUGS (1)
  1. ENTRESTO [Suspect]
     Active Substance: SACUBITRIL\VALSARTAN
     Indication: PRODUCT USED FOR UNKNOWN INDICATION
     Dosage: UNK (24 MG OF SACUBITRIL AND 26 MG OF VALSARTAN)
     Route: 048

REACTIONS (3)
  - Memory impairment [Unknown]
  - Tremor [Unknown]
  - Fatigue [Unknown]
